FAERS Safety Report 17284223 (Version 3)
Quarter: 2022Q4

REPORT INFORMATION
  Report Type: Report from Study
  Country: CA (occurrence: CA)
  Receive Date: 20200117
  Receipt Date: 20221130
  Transmission Date: 20230112
  Serious: Yes (Other)
  Sender: FDA-Public Use
  Company Number: PHHY2016CA158001

PATIENT
  Sex: Female

DRUGS (5)
  1. JADENU [Suspect]
     Active Substance: DEFERASIROX
     Indication: Iron overload
     Dosage: 720 MG, QD
     Route: 048
     Dates: start: 20161001
  2. JADENU [Suspect]
     Active Substance: DEFERASIROX
     Indication: Thalassaemia beta
     Dosage: 360 MG, QD (FOR TWO DAYS)
     Route: 048
     Dates: end: 202204
  3. DESFERAL [Suspect]
     Active Substance: DEFEROXAMINE MESYLATE
     Indication: Iron overload
     Dosage: (SUBCUTANEOUS)
     Route: 042
  4. FOLIC ACID [Concomitant]
     Active Substance: FOLIC ACID
     Indication: Product used for unknown indication
     Dosage: UNK
     Route: 065
  5. VITAMIN D [Concomitant]
     Active Substance: VITAMIN D NOS
     Indication: Product used for unknown indication
     Dosage: UNK
     Route: 065

REACTIONS (15)
  - Neoplasm malignant [Unknown]
  - Pericardial effusion [Unknown]
  - Haemoglobin decreased [Unknown]
  - Visual impairment [Unknown]
  - Infusion site pain [Unknown]
  - Left ventricular dilatation [Unknown]
  - Bundle branch block left [Unknown]
  - Left ventricular end-diastolic pressure increased [Unknown]
  - Stroke volume increased [Unknown]
  - Splenomegaly [Unknown]
  - White blood cell count decreased [Unknown]
  - Serum ferritin increased [Recovering/Resolving]
  - Nausea [Unknown]
  - Vomiting [Unknown]
  - Product use issue [Unknown]

NARRATIVE: CASE EVENT DATE: 20160101
